FAERS Safety Report 16920528 (Version 2)
Quarter: 2019Q4

REPORT INFORMATION
  Report Type: Report from Study
  Country: ES (occurrence: ES)
  Receive Date: 20191015
  Receipt Date: 20191223
  Transmission Date: 20200122
  Serious: Yes (Other)
  Sender: FDA-Public Use
  Company Number: ES-JNJFOC-20191017434

PATIENT
  Age: 67 Year
  Sex: Male

DRUGS (3)
  1. INFLIXIMAB, RECOMBINANT [Suspect]
     Active Substance: INFLIXIMAB
     Indication: ANKYLOSING SPONDYLITIS
     Route: 042
  2. DEFLAZACORT [Concomitant]
     Active Substance: DEFLAZACORT
     Indication: IMMUNOSUPPRESSION
     Route: 065
  3. DEFLAZACORT [Concomitant]
     Active Substance: DEFLAZACORT
     Indication: IMMUNOSUPPRESSANT DRUG THERAPY

REACTIONS (2)
  - Leishmaniasis [Recovered/Resolved]
  - Cutaneous leishmaniasis [Recovered/Resolved]
